FAERS Safety Report 4895272-3 (Version None)
Quarter: 2006Q1

REPORT INFORMATION
  Report Type: 
  Country: None (occurrence: None)
  Receive Date: 20060130
  Receipt Date: 20060127
  Transmission Date: 20060701
  Serious: Yes (Hospitalization)
  Sender: FDA-Public Use
  Company Number: FR-GLAXOSMITHKLINE-B0408219A

PATIENT
  Age: 63 Year
  Sex: Female

DRUGS (3)
  1. CLAMOXYL [Suspect]
     Indication: ENDOCARDITIS
     Dosage: 12G PER DAY
     Route: 042
     Dates: start: 20051105, end: 20051205
  2. CLAMOXYL [Concomitant]
     Dosage: 6G PER DAY
     Route: 048
     Dates: start: 20051023, end: 20051104
  3. GENTAMICIN [Concomitant]
     Indication: ENDOCARDITIS
     Route: 065
     Dates: start: 20050930, end: 20051014

REACTIONS (2)
  - BLOOD CREATININE INCREASED [None]
  - RENAL FAILURE ACUTE [None]
